FAERS Safety Report 6140634-X (Version None)
Quarter: 2009Q1

REPORT INFORMATION
  Report Type: 
  Country: None (occurrence: None)
  Receive Date: 20090331
  Receipt Date: 20090326
  Transmission Date: 20090719
  Serious: Yes (Hospitalization)
  Sender: FDA-Public Use
  Company Number: 2009AL001809

PATIENT
  Age: 82 Year
  Sex: Male

DRUGS (12)
  1. CARVEDILOL [Suspect]
     Dosage: PO
     Route: 048
  2. DIAZEPAM TAB [Suspect]
  3. DIGOXIN [Suspect]
     Dosage: PO
     Route: 048
  4. VERAPAMIL HCL [Suspect]
  5. PAROXETINE HCL [Concomitant]
  6. SALMETEROL [Concomitant]
  7. FUROSEMIDE [Concomitant]
  8. CLARITHROMYCIN [Concomitant]
  9. THEOPHYLLINE [Concomitant]
  10. SULPIRIDE [Concomitant]
  11. TIOTROPIUM BROMIDE [Concomitant]
  12. DANTROLENE SODIUM [Concomitant]

REACTIONS (1)
  - NEUROLEPTIC MALIGNANT SYNDROME [None]
